FAERS Safety Report 6481347-4 (Version None)
Quarter: 2009Q4

REPORT INFORMATION
  Report Type: 
  Country: None (occurrence: None)
  Receive Date: 20091123
  Receipt Date: 20090930
  Transmission Date: 20100525
  Serious: No
  Sender: FDA-Public Use
  Company Number: 8052862

PATIENT
  Age: 44 Year
  Sex: Female
  Weight: 98.8 kg

DRUGS (8)
  1. CIMZIA [Suspect]
     Indication: CROHN'S DISEASE
     Dosage: 400 MG SC
     Route: 058
     Dates: start: 20080701
  2. IMURAN [Concomitant]
  3. LEXAPRO [Concomitant]
  4. ALBUTEROL [Concomitant]
  5. ZYRTEC [Concomitant]
  6. ADVAIR DISKUS 100/50 [Concomitant]
  7. FLONASE [Concomitant]
  8. MULTI-VITAMIN [Concomitant]

REACTIONS (6)
  - ABDOMINAL PAIN [None]
  - ARTHROPOD BITE [None]
  - DECREASED APPETITE [None]
  - DIARRHOEA [None]
  - NAUSEA [None]
  - VOMITING [None]
